FAERS Safety Report 7392914-8 (Version None)
Quarter: 2011Q2

REPORT INFORMATION
  Report Type: 
  Country: None (occurrence: None)
  Receive Date: 20110404
  Receipt Date: 20110324
  Transmission Date: 20111010
  Serious: Yes (Other)
  Sender: FDA-Public Use
  Company Number: BR-ASTRAZENECA-2011SE15067

PATIENT
  Sex: Male

DRUGS (4)
  1. CRESTOR [Suspect]
     Indication: HYPERCHOLESTEROLAEMIA
     Route: 048
     Dates: start: 20090101, end: 20101201
  2. CRESTOR [Suspect]
     Route: 048
     Dates: start: 20101201, end: 20110309
  3. MICARDIS [Concomitant]
     Route: 048
  4. FLUOXETINE [Concomitant]
     Indication: DEPRESSION
     Route: 048
     Dates: start: 20100801, end: 20110301

REACTIONS (2)
  - DEPRESSION [None]
  - SUICIDAL IDEATION [None]
